FAERS Safety Report 22264493 (Version 1)
Quarter: 2023Q2

REPORT INFORMATION
  Report Type: Spontaneous
  Country: US (occurrence: None)
  Receive Date: 20230427
  Receipt Date: 20230427
  Transmission Date: 20230721
  Serious: Yes (Hospitalization, Disabling)
  Sender: FDA-Public Use
  Company Number: None

PATIENT
  Age: 41 Year
  Sex: Female
  Weight: 90 kg

DRUGS (2)
  1. CIPROFLOXACIN [Suspect]
     Active Substance: CIPROFLOXACIN
     Indication: Drug therapy
     Dosage: 10 TABLETS TWICE A DAY ORAL?
     Route: 048
     Dates: start: 20230422, end: 20230423
  2. CIPRO [Suspect]
     Active Substance: CIPROFLOXACIN HYDROCHLORIDE
     Indication: Urinary tract infection
     Dates: start: 20230421, end: 20230425

REACTIONS (39)
  - Pain [None]
  - Medical device discomfort [None]
  - Pyrexia [None]
  - Nausea [None]
  - Confusional state [None]
  - Flank pain [None]
  - Urinary tract infection [None]
  - Chills [None]
  - Headache [None]
  - Photophobia [None]
  - Hypertension [None]
  - Cough [None]
  - Migraine [None]
  - Fluid retention [None]
  - Fluid retention [None]
  - Fatigue [None]
  - Renal function test abnormal [None]
  - Joint swelling [None]
  - Musculoskeletal discomfort [None]
  - Neck pain [None]
  - Arthralgia [None]
  - Myalgia [None]
  - Musculoskeletal chest pain [None]
  - Insomnia [None]
  - Burning sensation [None]
  - Paraesthesia [None]
  - Mobility decreased [None]
  - Hypoaesthesia [None]
  - Hypoaesthesia [None]
  - Limb discomfort [None]
  - Anxiety [None]
  - Panic disorder [None]
  - Thinking abnormal [None]
  - Hypoaesthesia [None]
  - Tinnitus [None]
  - Balance disorder [None]
  - Constipation [None]
  - Emotional disorder [None]
  - Memory impairment [None]

NARRATIVE: CASE EVENT DATE: 20230401
